FAERS Safety Report 5472598-6 (Version None)
Quarter: 2007Q4

REPORT INFORMATION
  Report Type: 
  Country: None (occurrence: None)
  Receive Date: 20071001
  Receipt Date: 20061006
  Transmission Date: 20080405
  Serious: No
  Sender: FDA-Public Use
  Company Number: US-ASTRAZENECA-2006UW14842

PATIENT
  Age: 68 Year
  Sex: Female
  Weight: 72.6 kg

DRUGS (5)
  1. ARIMIDEX [Suspect]
     Indication: BREAST CANCER
     Route: 048
  2. ATENOLOL [Concomitant]
  3. LISINOPRIL [Concomitant]
  4. K-DUR 10 [Concomitant]
  5. HYDROCHLOROTHIAZIDE [Concomitant]

REACTIONS (4)
  - ARTHRALGIA [None]
  - HIP DYSPLASIA [None]
  - INFLUENZA LIKE ILLNESS [None]
  - OEDEMA PERIPHERAL [None]
